FAERS Safety Report 8919261 (Version 1)
Quarter: 2012Q4

REPORT INFORMATION
  Report Type: 
  Country: US (occurrence: US)
  Receive Date: 20121121
  Receipt Date: 20121121
  Transmission Date: 20130627
  Serious: Yes (Hospitalization, Other)
  Sender: FDA-Public Use
  Company Number: US-PFIZER INC-2012290277

PATIENT
  Age: 45 Year
  Sex: Female
  Weight: 81.63 kg

DRUGS (3)
  1. CHANTIX [Suspect]
     Indication: SMOKING CESSATION THERAPY
     Dosage: 0.5 mg, daily
     Dates: start: 2008, end: 2008
  2. SOMA [Concomitant]
     Indication: MUSCLE RELAXANT
     Dosage: 700 mg, daily
  3. PRAVASTATIN SODIUM [Concomitant]
     Indication: BLOOD PRESSURE ABNORMAL
     Dosage: 40 mg, daily

REACTIONS (1)
  - Suicide attempt [Unknown]
